FAERS Safety Report 10235413 (Version 1)
Quarter: 2014Q2

REPORT INFORMATION
  Report Type: Spontaneous
  Country: US (occurrence: None)
  Receive Date: 20140612
  Receipt Date: 20140612
  Transmission Date: 20141212
  Serious: Yes (Other)
  Sender: FDA-Public Use
  Company Number: None

PATIENT
  Sex: Female

DRUGS (1)
  1. ACTONEL [Suspect]
     Dosage: 1?WEEKLY?TAKEN BY MOUTH
     Route: 048

REACTIONS (2)
  - Pain in jaw [None]
  - Gastrooesophageal reflux disease [None]
